FAERS Safety Report 11920216 (Version 1)
Quarter: 2016Q1

REPORT INFORMATION
  Report Type: Spontaneous
  Country: US (occurrence: US)
  Receive Date: 20160115
  Receipt Date: 20160115
  Transmission Date: 20160526
  Serious: No
  Sender: FDA-Public Use
  Company Number: US-BAYER-2016-006806

PATIENT
  Sex: Female

DRUGS (1)
  1. MIRENA [Suspect]
     Active Substance: LEVONORGESTREL
     Indication: MULTIPLE SCLEROSIS
     Dosage: 20 MCG/24HR, CONT
     Route: 015

REACTIONS (6)
  - Pain in extremity [None]
  - Throat irritation [None]
  - Off label use of device [None]
  - Nasopharyngitis [None]
  - Rash [None]
  - Lymphadenopathy [None]
